FAERS Safety Report 10451230 (Version 1)
Quarter: 2014Q3

REPORT INFORMATION
  Report Type: Spontaneous
  Country: US (occurrence: US)
  Receive Date: 20140912
  Receipt Date: 20140912
  Transmission Date: 20150326
  Serious: Yes (Other)
  Sender: FDA-Public Use
  Company Number: US-ABBVIE-14P-163-1280047-00

PATIENT
  Age: 47 Year
  Sex: Male

DRUGS (2)
  1. ANDROGEL [Suspect]
     Active Substance: TESTOSTERONE
     Indication: BLOOD TESTOSTERONE DECREASED
     Dates: start: 20120505, end: 20120625
  2. AXIRON [Suspect]
     Active Substance: TESTOSTERONE
     Indication: BLOOD TESTOSTERONE DECREASED
     Dosage: 30MG/ACT
     Dates: start: 20120626, end: 20120905

REACTIONS (9)
  - Deep vein thrombosis [Unknown]
  - Pain [Unknown]
  - Respiratory failure [Unknown]
  - Pulmonary infarction [Unknown]
  - Deep vein thrombosis [Unknown]
  - Injury [Unknown]
  - Pulmonary embolism [Unknown]
  - Economic problem [Unknown]
  - Emotional distress [Unknown]

NARRATIVE: CASE EVENT DATE: 20120906
